FAERS Safety Report 22590223 (Version 1)
Quarter: 2023Q2

REPORT INFORMATION
  Report Type: Spontaneous
  Country: US (occurrence: None)
  Receive Date: 20230609
  Receipt Date: 20230609
  Transmission Date: 20230721
  Serious: Yes (Death)
  Sender: FDA-Public Use
  Company Number: None

PATIENT
  Age: 53 Year
  Sex: Female

DRUGS (1)
  1. SANCUSO [Suspect]
     Active Substance: GRANISETRON
     Dosage: OTHER FREQUENCY : EVERY 7 DAYS;?
     Route: 062

REACTIONS (1)
  - Death [None]

NARRATIVE: CASE EVENT DATE: 20230605
